FAERS Safety Report 9886155 (Version 3)
Quarter: 2014Q3

REPORT INFORMATION
  Report Type: Spontaneous
  Country: US (occurrence: US)
  Receive Date: 20140210
  Receipt Date: 20140905
  Transmission Date: 20150326
  Serious: Yes (Hospitalization, Other)
  Sender: FDA-Public Use
  Company Number: US-009507513-1402USA004223

PATIENT
  Sex: Female
  Weight: 146.94 kg

DRUGS (1)
  1. NUVARING [Suspect]
     Active Substance: ETHINYL ESTRADIOL\ETONOGESTREL
     Indication: CONTRACEPTION
     Dosage: UNK
     Route: 067
     Dates: start: 2004, end: 20120314

REACTIONS (8)
  - Incorrect drug administration duration [Unknown]
  - Genital herpes [Unknown]
  - Asthma [Unknown]
  - Pulmonary embolism [Unknown]
  - Hypoxia [Unknown]
  - Chest pain [Unknown]
  - Dysfunctional uterine bleeding [Unknown]
  - Sleep apnoea syndrome [Unknown]

NARRATIVE: CASE EVENT DATE: 201202
